FAERS Safety Report 7710608-3 (Version None)
Quarter: 2011Q3

REPORT INFORMATION
  Report Type: 
  Country: None (occurrence: None)
  Receive Date: 20110825
  Receipt Date: 20110818
  Transmission Date: 20111222
  Serious: Yes (Other)
  Sender: FDA-Public Use
  Company Number: US-PFIZER INC-2007036833

PATIENT
  Sex: Female

DRUGS (2)
  1. NEURONTIN [Suspect]
     Indication: NEUROPATHY PERIPHERAL
     Dosage: 300 MG, UNK
  2. NEURONTIN [Suspect]
     Indication: NEURALGIA

REACTIONS (6)
  - DEPRESSION [None]
  - PALPITATIONS [None]
  - ANXIETY [None]
  - NAUSEA [None]
  - BLOOD PRESSURE INCREASED [None]
  - AMNESIA [None]
